FAERS Safety Report 9353729 (Version 1)
Quarter: 2013Q2

REPORT INFORMATION
  Report Type: Spontaneous
  Country: IR (occurrence: IR)
  Receive Date: 20130618
  Receipt Date: 20130618
  Transmission Date: 20140414
  Serious: Yes (Life-Threatening, Hospitalization)
  Sender: FDA-Public Use
  Company Number: IR-PFIZER INC-IDA-00427

PATIENT
  Age: 32 Year
  Sex: Male

DRUGS (2)
  1. PROPANOLOL HCL [Suspect]
     Dosage: UNK
     Route: 048
  2. PROPANOLOL HCL [Suspect]
     Dosage: 2400 MG (SIXTY TABLETS), UNK
     Route: 048

REACTIONS (6)
  - Overdose [Recovered/Resolved]
  - Hypotension [Recovered/Resolved]
  - Shock [Recovered/Resolved]
  - Bradycardia [Recovered/Resolved]
  - Metabolic acidosis [Recovered/Resolved]
  - Joint dislocation [Recovered/Resolved]
